FAERS Safety Report 12009353 (Version 1)
Quarter: 2016Q1

REPORT INFORMATION
  Report Type: Spontaneous
  Country: US (occurrence: US)
  Receive Date: 20160205
  Receipt Date: 20160205
  Transmission Date: 20160526
  Serious: No
  Sender: FDA-Public Use
  Company Number: US-PAR PHARMACEUTICAL, INC-2015SCPR014421

PATIENT

DRUGS (2)
  1. BUPROPION HYDROCHLORIDE XL [Suspect]
     Active Substance: BUPROPION HYDROCHLORIDE
     Indication: POSTPARTUM DEPRESSION
     Dosage: 1 DF, OD
     Route: 048
     Dates: start: 20150817, end: 20151016
  2. BUPROPION HYDROCHLORIDE XL [Suspect]
     Active Substance: BUPROPION HYDROCHLORIDE
     Dosage: 1 DF, OD
     Route: 048
     Dates: start: 20151017, end: 20151020

REACTIONS (7)
  - Tremor [Recovered/Resolved]
  - Chest pain [Recovered/Resolved]
  - Product quality issue [Unknown]
  - Sensory disturbance [Recovered/Resolved]
  - Drug withdrawal syndrome [Recovering/Resolving]
  - Anxiety [Recovered/Resolved]
  - Dizziness [Recovered/Resolved]

NARRATIVE: CASE EVENT DATE: 20151017
